FAERS Safety Report 6872734-0 (Version None)
Quarter: 2010Q3

REPORT INFORMATION
  Report Type: 
  Country: None (occurrence: None)
  Receive Date: 20100723
  Receipt Date: 20090109
  Transmission Date: 20110219
  Serious: Yes (Other)
  Sender: FDA-Public Use
  Company Number: US-PFIZER INC-2008092353

PATIENT
  Sex: Male
  Weight: 126.1 kg

DRUGS (3)
  1. CHANTIX [Suspect]
     Indication: EX-TOBACCO USER
     Dates: start: 20071213, end: 20080401
  2. XANAX [Suspect]
     Indication: ANXIETY
     Dosage: UNK
     Dates: start: 20080101
  3. ANTIDEPRESSANTS [Suspect]
     Indication: DEPRESSION
     Dosage: UNK
     Dates: start: 20080101, end: 20080101

REACTIONS (4)
  - ANXIETY [None]
  - DEPRESSION [None]
  - DIZZINESS [None]
  - UNEVALUABLE EVENT [None]
